FAERS Safety Report 11055778 (Version 2)
Quarter: 2015Q2

REPORT INFORMATION
  Report Type: Spontaneous
  Country: US (occurrence: US)
  Receive Date: 20150422
  Receipt Date: 20150514
  Transmission Date: 20150821
  Serious: Yes (Hospitalization)
  Sender: FDA-Public Use
  Company Number: US-JNJFOC-20150209226

PATIENT
  Age: 65 Year
  Sex: Female

DRUGS (26)
  1. BENTYL [Concomitant]
     Active Substance: DICYCLOMINE HYDROCHLORIDE
  2. METROGEL [Concomitant]
     Active Substance: METRONIDAZOLE
     Route: 061
  3. IMODIUM [Concomitant]
     Active Substance: LOPERAMIDE HYDROCHLORIDE
  4. SYNTHROID [Concomitant]
     Active Substance: LEVOTHYROXINE SODIUM
  5. IMBRUVICA [Suspect]
     Active Substance: IBRUTINIB
     Indication: CHRONIC LYMPHOCYTIC LEUKAEMIA
     Route: 048
     Dates: start: 20140820, end: 201504
  6. PANTOPRAZOLE [Concomitant]
     Active Substance: PANTOPRAZOLE SODIUM
  7. SINGULAIR [Concomitant]
     Active Substance: MONTELUKAST SODIUM
  8. CLARITIN [Concomitant]
     Active Substance: LORATADINE
  9. POTASSIUM CHLORIDE. [Concomitant]
     Active Substance: POTASSIUM CHLORIDE
  10. OMEPRAZOLE. [Concomitant]
     Active Substance: OMEPRAZOLE
     Dosage: Q PM
  11. HYDROCHLOROTHIAZIDE. [Concomitant]
     Active Substance: HYDROCHLOROTHIAZIDE
  12. FLOVENT [Concomitant]
     Active Substance: FLUTICASONE PROPIONATE
  13. ASPIRIN. [Concomitant]
     Active Substance: ASPIRIN
  14. IMBRUVICA [Suspect]
     Active Substance: IBRUTINIB
     Indication: CHRONIC LYMPHOCYTIC LEUKAEMIA
     Route: 048
     Dates: start: 20150428
  15. VITAMIN D [Concomitant]
     Active Substance: CHOLECALCIFEROL
  16. ALBUTEROL. [Concomitant]
     Active Substance: ALBUTEROL
     Route: 055
  17. XANAX [Concomitant]
     Active Substance: ALPRAZOLAM
  18. ZYRTEC [Concomitant]
     Active Substance: CETIRIZINE HYDROCHLORIDE
  19. NASONEX [Concomitant]
     Active Substance: MOMETASONE FUROATE
     Route: 045
  20. AMLODIPINE [Concomitant]
     Active Substance: AMLODIPINE BESYLATE
  21. MIRAPEX [Concomitant]
     Active Substance: PRAMIPEXOLE DIHYDROCHLORIDE
  22. PRAVASTATIN [Concomitant]
     Active Substance: PRAVASTATIN\PRAVASTATIN SODIUM
     Dosage: Q PM
  23. MELOXICAM. [Concomitant]
     Active Substance: MELOXICAM
  24. DESYREL [Concomitant]
     Active Substance: TRAZODONE HYDROCHLORIDE
  25. CELEXA [Concomitant]
     Active Substance: CITALOPRAM HYDROBROMIDE
  26. IRON [Concomitant]
     Active Substance: IRON

REACTIONS (3)
  - Chondrocalcinosis pyrophosphate [Recovered/Resolved]
  - Anaemia postoperative [Recovering/Resolving]
  - Osteoarthritis [Recovering/Resolving]

NARRATIVE: CASE EVENT DATE: 20150202
